FAERS Safety Report 8092443-2 (Version None)
Quarter: 2012Q1

REPORT INFORMATION
  Report Type: 
  Country: None (occurrence: None)
  Receive Date: 20120128
  Receipt Date: 20110831
  Transmission Date: 20120608
  Serious: No
  Sender: FDA-Public Use
  Company Number: US-ABBOTT-11P-163-0842420-00

PATIENT
  Sex: Female
  Weight: 122.58 kg

DRUGS (14)
  1. COZAAR [Concomitant]
     Indication: PRODUCT USED FOR UNKNOWN INDICATION
  2. ACETAMINOPHEN [Concomitant]
     Indication: PRODUCT USED FOR UNKNOWN INDICATION
  3. METFORMIN HCL [Concomitant]
     Indication: PRODUCT USED FOR UNKNOWN INDICATION
     Dosage: ONE DAILY
  4. VICODIN [Concomitant]
     Indication: PAIN
  5. SULFASALAZINE [Concomitant]
     Indication: PRODUCT USED FOR UNKNOWN INDICATION
     Dosage: ONE OR TWO TABLETS DAILY
  6. HUMIRA [Suspect]
     Indication: ANKYLOSING SPONDYLITIS
     Dates: start: 20110601, end: 20110803
  7. GLUCOSAMINE [Concomitant]
     Indication: PRODUCT USED FOR UNKNOWN INDICATION
     Dosage: DAILY
  8. HUMIRA [Suspect]
     Indication: RHEUMATOID ARTHRITIS
  9. LASIX [Concomitant]
     Indication: PRODUCT USED FOR UNKNOWN INDICATION
  10. C-PAP MACHINE [Concomitant]
     Indication: PRODUCT USED FOR UNKNOWN INDICATION
     Dosage: AT NIGHT
  11. VITAMIN K TAB [Concomitant]
     Indication: PRODUCT USED FOR UNKNOWN INDICATION
     Dosage: DAILY
  12. VITAMIN D [Concomitant]
     Indication: PRODUCT USED FOR UNKNOWN INDICATION
  13. IBUPROFEN [Concomitant]
     Indication: PRODUCT USED FOR UNKNOWN INDICATION
  14. POTASSIUM [Concomitant]
     Indication: PRODUCT USED FOR UNKNOWN INDICATION

REACTIONS (6)
  - ANXIETY [None]
  - FEELING JITTERY [None]
  - GRANULOMA [None]
  - LACRIMAL PASSAGE GRANULOMA [None]
  - SOMNOLENCE [None]
  - RESTLESSNESS [None]
